FAERS Safety Report 6062780-1 (Version None)
Quarter: 2009Q1

REPORT INFORMATION
  Report Type: 
  Country: None (occurrence: None)
  Receive Date: 20090203
  Receipt Date: 20090121
  Transmission Date: 20090719
  Serious: Yes (Death)
  Sender: FDA-Public Use
  Company Number: US-JNJFOC-20090106937

PATIENT
  Sex: Female
  Weight: 60.78 kg

DRUGS (8)
  1. DURAGESIC-100 [Suspect]
     Indication: PAIN MANAGEMENT
     Route: 062
  2. PAXIL [Concomitant]
  3. TEGRETOL [Concomitant]
  4. NEURONTIN [Concomitant]
  5. ATIVAN [Concomitant]
  6. DESYREL [Concomitant]
  7. HALDOL SENNA [Concomitant]
  8. COLOCE [Concomitant]

REACTIONS (2)
  - LARYNGEAL CANCER [None]
  - LARYNGEAL STENOSIS [None]
